FAERS Safety Report 5913097-4 (Version None)
Quarter: 2008Q4

REPORT INFORMATION
  Report Type: 
  Country: None (occurrence: None)
  Receive Date: 20081008
  Receipt Date: 20081008
  Transmission Date: 20090506
  Serious: Yes (Other)
  Sender: FDA-Public Use
  Company Number: None

PATIENT
  Sex: Female
  Weight: 58.9676 kg

DRUGS (4)
  1. JANUVIA [Suspect]
     Indication: DIABETES MELLITUS
     Dosage: 100 MG 1 DAILY PO
     Route: 048
     Dates: start: 20080804, end: 20080811
  2. ASPIRIN [Concomitant]
  3. ALTACE [Concomitant]
  4. METFORMIN [Concomitant]

REACTIONS (1)
  - DEAFNESS UNILATERAL [None]
